FAERS Safety Report 16846643 (Version 1)
Quarter: 2019Q3

REPORT INFORMATION
  Report Type: Spontaneous
  Country: IE (occurrence: IE)
  Receive Date: 20190924
  Receipt Date: 20190924
  Transmission Date: 20191005
  Serious: Yes (Death, Other)
  Sender: FDA-Public Use
  Company Number: IE-MYLANLABS-2019M1089544

PATIENT
  Age: 61 Year
  Sex: Male

DRUGS (4)
  1. CLOZARIL [Suspect]
     Active Substance: CLOZAPINE
     Indication: SCHIZOPHRENIA
     Dosage: UNK
     Route: 048
     Dates: start: 20190625
  2. HALOPERIDOL. [Concomitant]
     Active Substance: HALOPERIDOL
     Dosage: UNK
  3. OLANZAPINE. [Concomitant]
     Active Substance: OLANZAPINE
     Dosage: UNK
  4. LITHIUM. [Concomitant]
     Active Substance: LITHIUM
     Dosage: UNK

REACTIONS (9)
  - Death [Fatal]
  - Lower respiratory tract infection [Unknown]
  - Fracture [Unknown]
  - Blood creatine phosphokinase increased [Unknown]
  - Splenomegaly [Unknown]
  - Fall [Unknown]
  - Renal failure [Unknown]
  - Sepsis [Unknown]
  - Tooth abscess [Unknown]

NARRATIVE: CASE EVENT DATE: 2019
